FAERS Safety Report 16006226 (Version 2)
Quarter: 2019Q1

REPORT INFORMATION
  Report Type: Spontaneous
  Country: US (occurrence: US)
  Receive Date: 20190226
  Receipt Date: 20190307
  Transmission Date: 20190418
  Serious: Yes (Death, Other)
  Sender: FDA-Public Use
  Company Number: US-ABBVIE-19K-163-2681411-00

PATIENT
  Sex: Female

DRUGS (3)
  1. HUMIRA [Suspect]
     Active Substance: ADALIMUMAB
     Indication: CROHN^S DISEASE
     Route: 058
     Dates: start: 2003, end: 201708
  2. METFORMIN [Concomitant]
     Active Substance: METFORMIN HYDROCHLORIDE
     Indication: TYPE 2 DIABETES MELLITUS
  3. INSULIN [Concomitant]
     Active Substance: INSULIN NOS
     Indication: TYPE 2 DIABETES MELLITUS

REACTIONS (12)
  - Hepatic cancer [Fatal]
  - Ear neoplasm [Unknown]
  - Ankle fracture [Unknown]
  - Spinal cord neoplasm [Unknown]
  - Neoplasm [Unknown]
  - Skin discolouration [Not Recovered/Not Resolved]
  - Metastatic neoplasm [Fatal]
  - Tumour rupture [Unknown]
  - Headache [Not Recovered/Not Resolved]
  - Pulmonary thrombosis [Not Recovered/Not Resolved]
  - Cholelithiasis [Unknown]
  - Chest pain [Not Recovered/Not Resolved]

NARRATIVE: CASE EVENT DATE: 2017
